FAERS Safety Report 13413426 (Version 2)
Quarter: 2017Q4

REPORT INFORMATION
  Report Type: Spontaneous
  Country: US (occurrence: US)
  Receive Date: 20170406
  Receipt Date: 20171123
  Transmission Date: 20180320
  Serious: No
  Sender: FDA-Public Use
  Company Number: US-JNJFOC-20170311694

PATIENT
  Age: 12 Year
  Sex: Male

DRUGS (15)
  1. RISPERDAL [Suspect]
     Active Substance: RISPERIDONE
     Indication: AUTISM SPECTRUM DISORDER
     Dosage: VARYING DOSES OF 0.25 MG, 0.375 MG AND 1 MG OF VARIOUS FREQUENCIES
     Route: 048
     Dates: start: 20050225, end: 20140903
  2. RISPERIDONE. [Suspect]
     Active Substance: RISPERIDONE
     Indication: AFFECTIVE DISORDER
     Route: 048
     Dates: start: 20050225, end: 20140226
  3. RISPERIDONE. [Suspect]
     Active Substance: RISPERIDONE
     Indication: AUTISM SPECTRUM DISORDER
     Route: 048
     Dates: start: 20050225, end: 20140226
  4. RISPERIDONE. [Suspect]
     Active Substance: RISPERIDONE
     Indication: AUTISM SPECTRUM DISORDER
     Route: 048
     Dates: start: 20140629
  5. RISPERIDONE. [Suspect]
     Active Substance: RISPERIDONE
     Indication: TRISOMY 21
     Route: 048
     Dates: start: 20050225, end: 20140226
  6. RISPERDAL [Suspect]
     Active Substance: RISPERIDONE
     Indication: ATTENTION DEFICIT/HYPERACTIVITY DISORDER
     Dosage: VARYING DOSES OF 0.25 MG, 0.375 MG AND 1 MG OF VARIOUS FREQUENCIES
     Route: 048
     Dates: start: 20050225, end: 20140903
  7. RISPERIDONE. [Suspect]
     Active Substance: RISPERIDONE
     Indication: AFFECTIVE DISORDER
     Route: 048
     Dates: start: 20140629
  8. RISPERIDONE. [Suspect]
     Active Substance: RISPERIDONE
     Indication: ATTENTION DEFICIT/HYPERACTIVITY DISORDER
     Route: 048
     Dates: start: 20140629
  9. RISPERIDONE. [Suspect]
     Active Substance: RISPERIDONE
     Indication: OBSESSIVE-COMPULSIVE DISORDER
     Route: 048
     Dates: start: 20050225, end: 20140226
  10. RISPERDAL [Suspect]
     Active Substance: RISPERIDONE
     Indication: OBSESSIVE-COMPULSIVE DISORDER
     Dosage: VARYING DOSES OF 0.25 MG, 0.375 MG AND 1 MG OF VARIOUS FREQUENCIES
     Route: 048
     Dates: start: 20050225, end: 20140903
  11. RISPERDAL [Suspect]
     Active Substance: RISPERIDONE
     Indication: AFFECTIVE DISORDER
     Dosage: VARYING DOSES OF 0.25 MG, 0.375 MG AND 1 MG OF VARIOUS FREQUENCIES
     Route: 048
     Dates: start: 20050225, end: 20140903
  12. RISPERIDONE. [Suspect]
     Active Substance: RISPERIDONE
     Indication: OBSESSIVE-COMPULSIVE DISORDER
     Route: 048
     Dates: start: 20140629
  13. RISPERIDONE. [Suspect]
     Active Substance: RISPERIDONE
     Indication: ATTENTION DEFICIT/HYPERACTIVITY DISORDER
     Route: 048
     Dates: start: 20050225, end: 20140226
  14. RISPERDAL [Suspect]
     Active Substance: RISPERIDONE
     Indication: TRISOMY 21
     Dosage: VARYING DOSES OF 0.25 MG, 0.375 MG AND 1 MG OF VARIOUS FREQUENCIES
     Route: 048
     Dates: start: 20050225, end: 20140903
  15. RISPERIDONE. [Suspect]
     Active Substance: RISPERIDONE
     Indication: TRISOMY 21
     Route: 048
     Dates: start: 20140629

REACTIONS (2)
  - Emotional disorder [Unknown]
  - Gynaecomastia [Unknown]

NARRATIVE: CASE EVENT DATE: 201305
